FAERS Safety Report 6221964-X (Version None)
Quarter: 2009Q2

REPORT INFORMATION
  Report Type: 
  Country: None (occurrence: None)
  Receive Date: 20090608
  Receipt Date: 20090608
  Transmission Date: 20091009
  Serious: Yes (Other)
  Sender: FDA-Public Use
  Company Number: None

PATIENT
  Sex: Male
  Weight: 121.564 kg

DRUGS (1)
  1. LEXAPRO [Suspect]
     Indication: DEPRESSION
     Dosage: 10MG ONCE DAILY PO
     Route: 048
     Dates: start: 20090527, end: 20090602

REACTIONS (8)
  - BURNING SENSATION [None]
  - CHEST PAIN [None]
  - DISTURBANCE IN ATTENTION [None]
  - EJACULATION FAILURE [None]
  - FATIGUE [None]
  - HYPERHIDROSIS [None]
  - PAIN IN EXTREMITY [None]
  - PARAESTHESIA [None]
